FAERS Safety Report 10283454 (Version 1)
Quarter: 2014Q3

REPORT INFORMATION
  Report Type: Spontaneous
  Country: US (occurrence: None)
  Receive Date: 20140703
  Receipt Date: 20140703
  Transmission Date: 20150326
  Serious: Yes (Death)
  Sender: FDA-Public Use
  Company Number: UNT-2014-001875

PATIENT
  Age: 61 Year
  Sex: Male
  Weight: 66.7 kg

DRUGS (3)
  1. TRACLEER /01587701/ (BOSENTAN) [Concomitant]
  2. TYVASO [Suspect]
     Active Substance: TREPROSTINIL
     Indication: COR PULMONALE CHRONIC
     Route: 055
     Dates: start: 20130610
  3. SILDENAFIL (SILDENAFIL) [Concomitant]
     Active Substance: SILDENAFIL

REACTIONS (1)
  - Death [None]

NARRATIVE: CASE EVENT DATE: 20140531
